FAERS Safety Report 4721373-6 (Version None)
Quarter: 2005Q3

REPORT INFORMATION
  Report Type: 
  Country: None (occurrence: None)
  Receive Date: 20050721
  Receipt Date: 20040726
  Transmission Date: 20060218
  Serious: No
  Sender: FDA-Public Use
  Company Number: US-BRISTOL-MYERS SQUIBB COMPANY-12651659

PATIENT
  Sex: Male

DRUGS (2)
  1. COUMADIN [Suspect]
     Dosage: ON THERAPY FOR A LONG DURATION; RECENTLY WAS GIVEN 5MG STARTING DOSE FOR 4 DAYS.
  2. HEPARIN [Concomitant]
     Dosage: ON THERAPY FOR A LONG DURATION

REACTIONS (1)
  - HAEMORRHAGE [None]
